FAERS Safety Report 12224409 (Version 1)
Quarter: 2016Q1

REPORT INFORMATION
  Report Type: Spontaneous
  Country: US (occurrence: US)
  Receive Date: 20160331
  Receipt Date: 20160331
  Transmission Date: 20160526
  Serious: No
  Sender: FDA-Public Use
  Company Number: US-009507513-1603USA013585

PATIENT
  Sex: Female

DRUGS (3)
  1. THERAPY UNSPECIFIED [Interacting]
     Active Substance: UNSPECIFIED INGREDIENT
     Dosage: UNK
  2. ROBITUSSIN DM [Interacting]
     Active Substance: DEXTROMETHORPHAN HYDROBROMIDE\GUAIFENESIN
     Indication: PARKINSON^S DISEASE
     Dosage: UNK
     Dates: start: 201603, end: 201603
  3. SINEMET [Suspect]
     Active Substance: CARBIDOPA\LEVODOPA
     Dosage: UNK
     Route: 048

REACTIONS (3)
  - Discomfort [Recovered/Resolved]
  - Dizziness [Recovered/Resolved]
  - Drug interaction [Unknown]

NARRATIVE: CASE EVENT DATE: 201603
